FAERS Safety Report 6451983-X (Version None)
Quarter: 2009Q4

REPORT INFORMATION
  Report Type: 
  Country: None (occurrence: None)
  Receive Date: 20091123
  Receipt Date: 20091023
  Transmission Date: 20100525
  Serious: No
  Sender: FDA-Public Use
  Company Number: US-BAYER-200916024BCC

PATIENT
  Age: 72 Year
  Sex: Female
  Weight: 61 kg

DRUGS (20)
  1. ALEVE (CAPLET) [Suspect]
     Indication: ARTHRITIS
     Dosage: TOTAL DAILY DOSE: 220 MG  UNIT DOSE: 220 MG
     Route: 048
     Dates: start: 20091016, end: 20091016
  2. PLAVIX [Concomitant]
     Route: 065
  3. LISINOPRIL [Concomitant]
     Route: 065
  4. PRAVASTATIN [Concomitant]
     Route: 065
  5. METOPROLOL TARTRATE [Concomitant]
     Route: 065
  6. SPRING VALLEY GINKO BILOBA [Concomitant]
     Route: 065
  7. EQUATE ASPIRIN [Concomitant]
     Route: 065
  8. SPRING VALLEY VITAMIN C AND E [Concomitant]
     Route: 065
  9. SPRING VALLEY GARLIC [Concomitant]
     Route: 065
  10. SPRING VALLEY B6 [Concomitant]
     Route: 065
  11. NATURE MADE FISH OIL [Concomitant]
     Route: 065
  12. EQUATE MULTIVITAMIN [Concomitant]
     Route: 065
  13. THERACRAN [Concomitant]
     Route: 065
  14. CITRICAL VITAMIN D PLUS MAGNESIUM [Concomitant]
     Route: 065
  15. SPRING VALLEY GLUCOSAMINE SULFATE [Concomitant]
     Route: 065
  16. SPRING VALLEY ZINC [Concomitant]
     Route: 065
  17. HAIR SKIN AND NAILS VITAMIN [Concomitant]
     Route: 065
  18. HUMULIN N [Concomitant]
     Route: 065
  19. HUMALOG [Concomitant]
     Route: 065
  20. LUMIGAN [Concomitant]
     Route: 065

REACTIONS (1)
  - DIZZINESS [None]
